FAERS Safety Report 21437761 (Version 1)
Quarter: 2022Q4

REPORT INFORMATION
  Report Type: Report from Study
  Country: US (occurrence: US)
  Receive Date: 20221011
  Receipt Date: 20221011
  Transmission Date: 20230113
  Serious: No
  Sender: FDA-Public Use
  Company Number: US-ABBVIE-4139218

PATIENT
  Sex: Female

DRUGS (3)
  1. HUMIRA [Suspect]
     Active Substance: ADALIMUMAB
     Indication: Product used for unknown indication
     Dosage: DOSAGE STRENGTH 40 MG
     Route: 058
     Dates: end: 202208
  2. Covid 19 Vaccination [Concomitant]
     Indication: COVID-19 immunisation
     Route: 030
     Dates: start: 202205, end: 202205
  3. LOSARTAN [Concomitant]
     Active Substance: LOSARTAN
     Indication: Blood pressure measurement

REACTIONS (1)
  - Cough [Not Recovered/Not Resolved]
